FAERS Safety Report 4303829-3 (Version None)
Quarter: 2004Q1

REPORT INFORMATION
  Report Type: 
  Country: None (occurrence: None)
  Receive Date: 20040223
  Receipt Date: 20040223
  Transmission Date: 20041129
  Serious: Yes (Hospitalization)
  Sender: FDA-Public Use
  Company Number: None

PATIENT
  Sex: Female
  Weight: 75.4 kg

DRUGS (4)
  1. CYCLOPHOSPHAMIDE [Suspect]
     Indication: BREAST CANCER
     Dosage: 600MG/M2 IV EVERY 14 DAYS
     Dates: start: 20040211
  2. DOXORUBICIN HCL [Suspect]
     Indication: BREAST CANCER
     Dosage: 60MG/M2 IV EVERY 14 DAYS
     Route: 042
     Dates: start: 20040211
  3. DARBEPOETIN ALFA [Concomitant]
  4. PEGFILGRASTIM [Concomitant]

REACTIONS (3)
  - BONE MARROW DEPRESSION [None]
  - NEUTROPHIL COUNT DECREASED [None]
  - PYREXIA [None]
